FAERS Safety Report 7744765-X (Version None)
Quarter: 2011Q3

REPORT INFORMATION
  Report Type: 
  Country: None (occurrence: None)
  Receive Date: 20110912
  Receipt Date: 20110912
  Transmission Date: 20111222
  Serious: Yes (Other)
  Sender: FDA-Public Use
  Company Number: None

PATIENT
  Age: 30 Year
  Sex: Female
  Weight: 65.77 kg

DRUGS (1)
  1. LEVOFLOXACIN [Suspect]
     Indication: GINGIVAL INFECTION
     Dosage: 1 PILL
     Route: 048
     Dates: start: 20110720, end: 20110729

REACTIONS (2)
  - ACCIDENT [None]
  - TENDON RUPTURE [None]
